FAERS Safety Report 9102798 (Version 3)
Quarter: 2013Q2

REPORT INFORMATION
  Report Type: Report from Study
  Country: FR (occurrence: FR)
  Receive Date: 20130218
  Receipt Date: 20130415
  Transmission Date: 20140414
  Serious: Yes (Hospitalization)
  Sender: FDA-Public Use
  Company Number: FR-ROCHE-1190819

PATIENT
  Age: 96 Year
  Sex: Female
  Weight: 48 kg

DRUGS (7)
  1. TRASTUZUMAB [Suspect]
     Indication: BREAST CANCER
     Dosage: MAINTENANCE DOSE, 380MG
     Route: 042
     Dates: start: 20070711, end: 20130128
  2. EXEMESTANE [Suspect]
     Indication: BREAST CANCER
     Route: 048
     Dates: start: 20070711, end: 20130128
  3. VASTAREL [Concomitant]
     Route: 065
     Dates: start: 201008
  4. COTAREG [Concomitant]
     Route: 065
     Dates: start: 201008
  5. ACTONEL COMBI D [Concomitant]
     Route: 065
     Dates: start: 201007
  6. VITAMIN D3 [Concomitant]
     Route: 065
     Dates: start: 201105
  7. VITAMIN D3 [Concomitant]
     Route: 065
     Dates: start: 201112

REACTIONS (2)
  - Femoral neck fracture [Recovering/Resolving]
  - Osteoporosis [Not Recovered/Not Resolved]
